FAERS Safety Report 24748715 (Version 2)
Quarter: 2024Q4

REPORT INFORMATION
  Report Type: Spontaneous
  Country: US (occurrence: US)
  Receive Date: 20241218
  Receipt Date: 20241218
  Transmission Date: 20250114
  Serious: Yes (Other)
  Sender: GILEAD
  Company Number: US-GILEAD-2024-0697402

PATIENT

DRUGS (1)
  1. TRUVADA [Suspect]
     Active Substance: EMTRICITABINE\TENOFOVIR DISOPROXIL FUMARATE
     Indication: Product used for unknown indication
     Dosage: UNK
     Route: 048
     Dates: start: 20100217, end: 20161111

REACTIONS (5)
  - Chronic kidney disease [Unknown]
  - Multiple fractures [Unknown]
  - Tooth loss [Unknown]
  - Vitamin D deficiency [Unknown]
  - Bone density decreased [Unknown]
